FAERS Safety Report 7022651-0 (Version None)
Quarter: 2010Q3

REPORT INFORMATION
  Report Type: 
  Country: None (occurrence: None)
  Receive Date: 20100930
  Receipt Date: 20100927
  Transmission Date: 20110219
  Serious: Yes (Death, Hospitalization, Other)
  Sender: FDA-Public Use
  Company Number: KR-PFIZER INC-2009249252

PATIENT
  Age: 51 Year
  Sex: Male
  Weight: 77 kg

DRUGS (6)
  1. VORICONAZOLE [Suspect]
     Indication: ASPERGILLOSIS
     Dosage: 200 MG, 2X/DAY
     Route: 048
     Dates: start: 20080121, end: 20080320
  2. SYNERCID [Concomitant]
     Indication: PNEUMONIA
     Dosage: UNK
     Route: 042
     Dates: start: 20080104, end: 20080123
  3. RANITIDINE [Concomitant]
     Dosage: UNK
     Route: 048
     Dates: start: 20080121, end: 20080125
  4. SEPTRIN [Concomitant]
     Indication: PNEUMONIA
     Dosage: 400 MG, 1X/DAY
     Route: 048
     Dates: start: 20080124, end: 20080126
  5. PREDNISOLONE [Concomitant]
     Indication: PYREXIA
     Dosage: UNK
     Route: 048
     Dates: start: 20071123, end: 20080125
  6. PREDNISOLONE [Concomitant]
     Dosage: UNK
     Route: 048
     Dates: start: 20080126, end: 20080320

REACTIONS (4)
  - PNEUMOTHORAX [None]
  - PULMONARY HAEMORRHAGE [None]
  - PYREXIA [None]
  - SEPTIC SHOCK [None]
